FAERS Safety Report 7382999-7 (Version None)
Quarter: 2011Q1

REPORT INFORMATION
  Report Type: 
  Country: None (occurrence: None)
  Receive Date: 20110330
  Receipt Date: 20091130
  Transmission Date: 20110831
  Serious: Yes (Death, Other)
  Sender: FDA-Public Use
  Company Number: US-BAYER-200941213NA

PATIENT
  Sex: Female
  Weight: 77.098 kg

DRUGS (12)
  1. EPINEPHRINE [Concomitant]
     Dosage: UNK
     Route: 042
     Dates: start: 20070130, end: 20070130
  2. TRASYLOL [Suspect]
     Indication: CORONARY ARTERY BYPASS
     Dosage: UNK
     Route: 042
     Dates: start: 20070101
  3. AMICAR [Concomitant]
     Dosage: 10 G, UNK
     Route: 042
     Dates: start: 20070130, end: 20070130
  4. MANNITOL [Concomitant]
     Dosage: 50 G, UNK
     Route: 042
     Dates: start: 20070130, end: 20070130
  5. INSULIN [Concomitant]
     Dosage: 2/3/4
     Route: 042
     Dates: start: 20070130, end: 20070130
  6. LEVOPHED [Concomitant]
     Dosage: 3 ?G, UNK
     Route: 042
     Dates: start: 20070130
  7. HEPARIN SODIUM [Concomitant]
     Dosage: 5000 U, UNK
     Dates: start: 20070130
  8. NITROGLYCERIN [Concomitant]
     Dosage: 100
     Route: 042
     Dates: start: 20070130, end: 20070130
  9. TOPROL-XL [Concomitant]
     Dosage: UNK UNK, QD
     Route: 048
  10. EFFEXOR [Concomitant]
     Dosage: UNK UNK, QD
     Route: 048
  11. PROTAMINE SULFATE [Concomitant]
     Dosage: 450MG IN 50CC OF LACTATED RINGERS, 500MG
     Route: 042
     Dates: start: 20070130, end: 20070130
  12. VERSED [Concomitant]
     Dosage: 5 MG, UNK
     Route: 042
     Dates: start: 20070130, end: 20070130

REACTIONS (13)
  - STRESS [None]
  - RENAL FAILURE [None]
  - ANHEDONIA [None]
  - FEAR [None]
  - MULTI-ORGAN FAILURE [None]
  - ANXIETY [None]
  - RENAL IMPAIRMENT [None]
  - DEATH [None]
  - UNEVALUABLE EVENT [None]
  - PAIN [None]
  - EMOTIONAL DISTRESS [None]
  - RENAL INJURY [None]
  - INJURY [None]
